FAERS Safety Report 7788388-5 (Version None)
Quarter: 2011Q3

REPORT INFORMATION
  Report Type: 
  Country: None (occurrence: None)
  Receive Date: 20110930
  Receipt Date: 20110916
  Transmission Date: 20111222
  Serious: Yes (Other)
  Sender: FDA-Public Use
  Company Number: US-JNJFOC-20110909632

PATIENT
  Sex: Female
  Weight: 62.6 kg

DRUGS (2)
  1. BENADRYL CHILDREN'S ALLERGY FASTMELT GRAPE [Suspect]
     Route: 048
  2. BENADRYL CHILDREN'S ALLERGY FASTMELT GRAPE [Suspect]
     Indication: MULTIPLE ALLERGIES
     Route: 048

REACTIONS (2)
  - RECTAL HAEMORRHAGE [None]
  - PRODUCT QUALITY ISSUE [None]
